FAERS Safety Report 5762141-6 (Version None)
Quarter: 2008Q2

REPORT INFORMATION
  Report Type: 
  Country: None (occurrence: None)
  Receive Date: 20080604
  Receipt Date: 20080519
  Transmission Date: 20081010
  Serious: Yes (Death)
  Sender: FDA-Public Use
  Company Number: 8029880

PATIENT
  Sex: Male

DRUGS (3)
  1. KEPPRA [Suspect]
     Indication: STATUS EPILEPTICUS
     Dosage: IV
     Route: 042
  2. PROPOFOL [Concomitant]
  3. NORADRENALINE [Concomitant]

REACTIONS (1)
  - BRAIN OEDEMA [None]
